FAERS Safety Report 17745551 (Version 1)
Quarter: 2020Q2

REPORT INFORMATION
  Report Type: Spontaneous
  Country: IT (occurrence: IT)
  Receive Date: 20200505
  Receipt Date: 20200505
  Transmission Date: 20200714
  Serious: Yes (Hospitalization)
  Sender: FDA-Public Use
  Company Number: NVSC2020IT120893

PATIENT
  Age: 5 Year
  Sex: Female
  Weight: 22 kg

DRUGS (1)
  1. CARVEDILOL. [Suspect]
     Active Substance: CARVEDILOL
     Indication: PRODUCT USED FOR UNKNOWN INDICATION
     Dosage: 1 IU, TOTAL (ERRORE TERAPEUTICO)
     Route: 048
     Dates: start: 20200115, end: 20200115

REACTIONS (2)
  - Hypotension [Recovered/Resolved]
  - Medication error [Recovered/Resolved]

NARRATIVE: CASE EVENT DATE: 20200115
